FAERS Safety Report 12692373 (Version 1)
Quarter: 2016Q3

REPORT INFORMATION
  Report Type: Spontaneous
  Country: US (occurrence: US)
  Receive Date: 20160828
  Receipt Date: 20160828
  Transmission Date: 20161109
  Serious: No
  Sender: FDA-Public Use
  Company Number: US-ASTRAZENECA-2016SE86497

PATIENT
  Age: 68 Year
  Sex: Male
  Weight: 70.3 kg

DRUGS (8)
  1. PULMICORT FLEXHALER [Suspect]
     Active Substance: BUDESONIDE
     Indication: CHRONIC OBSTRUCTIVE PULMONARY DISEASE
     Dosage: PULMICORT FLEXHALER 180MCG 1 PUFF DAILY
     Route: 055
  2. MONTELUKAST [Concomitant]
     Active Substance: MONTELUKAST SODIUM
     Indication: LUNG DISORDER
     Route: 048
  3. PULMICORT FLEXHALER [Suspect]
     Active Substance: BUDESONIDE
     Indication: CHRONIC OBSTRUCTIVE PULMONARY DISEASE
     Dosage: PULMICORT FLEXHALER 180MCG, 1 PUFF TWICE A DAY
     Route: 055
  4. PULMICORT FLEXHALER [Suspect]
     Active Substance: BUDESONIDE
     Indication: ASTHMA
     Dosage: PULMICORT FLEXHALER 180MCG, 1 PUFF TWICE A DAY
     Route: 055
  5. ALBUTEROL. [Concomitant]
     Active Substance: ALBUTEROL
     Indication: EMERGENCY CARE
     Route: 055
  6. FLUTICISONE [Concomitant]
     Indication: SINUSITIS
     Route: 045
  7. PULMICORT FLEXHALER [Suspect]
     Active Substance: BUDESONIDE
     Indication: ASTHMA
     Dosage: PULMICORT FLEXHALER 180MCG 1 PUFF DAILY
     Route: 055
  8. ANORO ELLIPTA [Concomitant]
     Active Substance: UMECLIDINIUM BROMIDE\VILANTEROL TRIFENATATE
     Indication: CHRONIC OBSTRUCTIVE PULMONARY DISEASE
     Route: 055
     Dates: start: 20160601

REACTIONS (6)
  - Asthma-chronic obstructive pulmonary disease overlap syndrome [Unknown]
  - Dyspnoea [Unknown]
  - Intentional product misuse [Unknown]
  - General physical health deterioration [Unknown]
  - Chronic sinusitis [Unknown]
  - Bronchial disorder [Unknown]

NARRATIVE: CASE EVENT DATE: 2015
